FAERS Safety Report 6507118-8 (Version None)
Quarter: 2009Q4

REPORT INFORMATION
  Report Type: 
  Country: None (occurrence: None)
  Receive Date: 20091221
  Receipt Date: 20091210
  Transmission Date: 20100525
  Serious: Yes (Other)
  Sender: FDA-Public Use
  Company Number: PHHY2009GT54592

PATIENT
  Age: 57 Year
  Sex: Female

DRUGS (4)
  1. ACLASTA [Suspect]
     Indication: OSTEOPOROSIS
     Dosage: 5MG, UNK
     Route: 042
     Dates: start: 20090901
  2. CLARITHROMYCIN [Concomitant]
  3. AMOXICILLIN [Concomitant]
  4. ESOMEPRAZOLE [Concomitant]

REACTIONS (1)
  - FIBULA FRACTURE [None]
